FAERS Safety Report 13365391 (Version 1)
Quarter: 2017Q1

REPORT INFORMATION
  Report Type: Spontaneous
  Country: US (occurrence: US)
  Receive Date: 20170323
  Receipt Date: 20170323
  Transmission Date: 20170429
  Serious: No
  Sender: FDA-Public Use
  Company Number: US-ALLERGAN-2016-000290

PATIENT
  Sex: Female
  Weight: 54.42 kg

DRUGS (2)
  1. ESTRACE [Suspect]
     Active Substance: ESTRADIOL
     Indication: VULVOVAGINAL BURNING SENSATION
     Dosage: .5 G, TWICE WEEKLY
     Route: 067
  2. ESTRACE [Suspect]
     Active Substance: ESTRADIOL
     Dosage: .5 G NIGHTLY FOR TWO WEEKS
     Route: 067
     Dates: start: 201512

REACTIONS (1)
  - Vulvovaginal burning sensation [Not Recovered/Not Resolved]

NARRATIVE: CASE EVENT DATE: 201512
